FAERS Safety Report 9336435 (Version 2)
Quarter: 2013Q3

REPORT INFORMATION
  Report Type: Spontaneous
  Country: US (occurrence: US)
  Receive Date: 20130607
  Receipt Date: 20130710
  Transmission Date: 20140515
  Serious: No
  Sender: FDA-Public Use
  Company Number: US-009507513-1306USA002479

PATIENT
  Age: 70 Year
  Sex: Male
  Weight: 99.77 kg

DRUGS (6)
  1. PEG-INTRON [Suspect]
     Indication: HEPATITIS C
     Dosage: 150 MICROGRAM, QW (REDIPEN)
     Route: 058
     Dates: start: 20130508
  2. REBETOL [Suspect]
     Dosage: UNK
     Route: 048
     Dates: start: 20130507
  3. ENALAPRIL MALEATE [Concomitant]
  4. OXYCONTIN [Concomitant]
  5. AMLODIPINE [Concomitant]
  6. ASPIRIN [Concomitant]

REACTIONS (1)
  - Gout [Not Recovered/Not Resolved]
